FAERS Safety Report 4722097-1 (Version None)
Quarter: 2005Q3

REPORT INFORMATION
  Report Type: 
  Country: None (occurrence: None)
  Receive Date: 20050720
  Receipt Date: 20050707
  Transmission Date: 20060218
  Serious: Yes (Death)
  Sender: FDA-Public Use
  Company Number: 190286

PATIENT
  Age: 62 Year
  Sex: Female

DRUGS (9)
  1. AVONEX [Suspect]
     Indication: MULTIPLE SCLEROSIS
     Dosage: 30 UG QW IM
     Route: 030
     Dates: start: 20020601, end: 20030701
  2. AVONEX [Suspect]
     Indication: MULTIPLE SCLEROSIS
     Dosage: 30 UG QW IM
     Route: 030
     Dates: start: 20030801, end: 20040101
  3. ZOLOFT [Concomitant]
  4. NEURONTIN [Concomitant]
  5. METOPROLOL [Concomitant]
  6. BEXTRA [Concomitant]
  7. ESTROGEN [Concomitant]
  8. FUROSEMIDE [Concomitant]
  9. HUMULIN [Concomitant]

REACTIONS (1)
  - IDIOPATHIC PULMONARY FIBROSIS [None]
